FAERS Safety Report 23516056 (Version 1)
Quarter: 2024Q1

REPORT INFORMATION
  Report Type: Spontaneous
  Country: FR (occurrence: FR)
  Receive Date: 20240213
  Receipt Date: 20240213
  Transmission Date: 20240410
  Serious: Yes (Other)
  Sender: FDA-Public Use
  Company Number: FR-ROCHE-3495953

PATIENT
  Age: 71 Year
  Sex: Male
  Weight: 90 kg

DRUGS (3)
  1. CARBOPLATIN [Suspect]
     Active Substance: CARBOPLATIN
     Indication: Neoplasm malignant
     Dosage: UNK (ON 21/OCT/2022, HE RECEIVED THE LAST DOSE OF CARBOPLATIN (530 MG) PRIOR TO AE/SAE.)
     Route: 042
     Dates: start: 20220819, end: 20221021
  2. PEMETREXED [Suspect]
     Active Substance: PEMETREXED
     Indication: Neoplasm malignant
     Dosage: UNK (ON 09/NOV/2022, HE RECEIVED MOST RECENT DOSE OF PEMETREXED (200 MG) PRIOR TO AE/SAE ONSET.)
     Route: 042
     Dates: start: 20220819, end: 20221130
  3. PEMBROLIZUMAB [Suspect]
     Active Substance: PEMBROLIZUMAB
     Indication: Neoplasm malignant
     Dosage: UNK (ON 09/DEC/2022, HE RECEIVED THE MOST RECENT DOSE OF PEMBROLIZUMAB (200 MG) PRIOR TO AE/SAE ONSE
     Route: 042
     Dates: start: 20220819

REACTIONS (1)
  - Gastric ulcer [Recovered/Resolved]

NARRATIVE: CASE EVENT DATE: 20231213
